FAERS Safety Report 26076942 (Version 1)
Quarter: 2025Q4

REPORT INFORMATION
  Report Type: Report from Study
  Country: US (occurrence: US)
  Receive Date: 20251121
  Receipt Date: 20251121
  Transmission Date: 20260117
  Serious: Yes (Other)
  Sender: ALEXION PHARMACEUTICALS
  Company Number: US-AstraZeneca-CH-00996409A

PATIENT
  Age: 25 Year
  Sex: Male
  Weight: 68.481 kg

DRUGS (5)
  1. TEZEPELUMAB [Suspect]
     Active Substance: TEZEPELUMAB
     Indication: Asthma
     Dosage: 210 MILLIGRAM PER MILLILITRE, Q4W
     Dates: start: 20250626, end: 20250829
  2. TEZEPELUMAB [Suspect]
     Active Substance: TEZEPELUMAB
  3. PULMICORT TURBUHALER [Suspect]
     Active Substance: BUDESONIDE
  4. ALBUTEROL [Concomitant]
     Active Substance: ALBUTEROL
     Route: 065
  5. PREDNISONE [Concomitant]
     Active Substance: PREDNISONE
     Route: 065

REACTIONS (16)
  - Chest discomfort [Recovering/Resolving]
  - Dyspnoea [Recovering/Resolving]
  - Cough [Recovering/Resolving]
  - Wheezing [Recovering/Resolving]
  - Pyrexia [Recovered/Resolved]
  - Diarrhoea [Recovering/Resolving]
  - Cardiomegaly [Unknown]
  - Computerised tomogram abdomen [Unknown]
  - Drug ineffective [Unknown]
  - Lung opacity [Unknown]
  - Colitis [Unknown]
  - Blood immunoglobulin E increased [Unknown]
  - Blood immunoglobulin G decreased [Unknown]
  - Rhinitis allergic [Unknown]
  - Dialysis [Unknown]
  - Condition aggravated [Unknown]

NARRATIVE: CASE EVENT DATE: 20251001
